FAERS Safety Report 9009678 (Version 1)
Quarter: 2013Q1

REPORT INFORMATION
  Report Type: Spontaneous
  Country: US (occurrence: US)
  Receive Date: 20130110
  Receipt Date: 20130110
  Transmission Date: 20140127
  Serious: Yes (Other)
  Sender: FDA-Public Use
  Company Number: US-PFIZER INC-2013009549

PATIENT
  Sex: Female
  Weight: 72.56 kg

DRUGS (1)
  1. ROBITUSSIN DAYTIME COLD AND FLU [Suspect]
     Indication: NASOPHARYNGITIS
     Dosage: UNK
     Route: 048
     Dates: start: 20130107, end: 20130107

REACTIONS (2)
  - Choking [Unknown]
  - Dysphagia [Unknown]
